FAERS Safety Report 8914390 (Version 2)
Quarter: 2013Q1

REPORT INFORMATION
  Report Type: Report from Study
  Country: JP (occurrence: JP)
  Receive Date: 20121119
  Receipt Date: 20130327
  Transmission Date: 20140127
  Serious: Yes (Life-Threatening, Other)
  Sender: FDA-Public Use
  Company Number: JP-009507513-2012SP025806

PATIENT
  Age: 64 Year
  Sex: Female
  Weight: 47 kg

DRUGS (11)
  1. PEGINTRON [Suspect]
     Indication: HEPATITIS C
     Dosage: 1.5 MICROGRAM PER KILOGRAM, QW
     Route: 058
     Dates: start: 20120416, end: 20120423
  2. REBETOL [Suspect]
     Indication: HEPATITIS C
     Dosage: 400 MG, QD
     Route: 048
     Dates: start: 20120416, end: 20120425
  3. TELAVIC [Suspect]
     Indication: HEPATITIS C
     Dosage: 1500 MG, QD
     Route: 048
     Dates: start: 20120416, end: 20120425
  4. PLAVIX [Concomitant]
     Indication: CAROTID ARTERY STENOSIS
     Dosage: 1 DF, QD
     Route: 048
  5. AMLODIN (AMLODIPINE BESYLATE) [Concomitant]
     Indication: HYPERTENSION
     Dosage: 5 MG, QD
     Route: 048
  6. BLOPRESS [Concomitant]
     Indication: HYPERTENSION
     Dosage: 8 MG, QD
     Route: 048
  7. BAYASPIRIN [Concomitant]
     Indication: CAROTID ARTERY STENOSIS
     Dosage: 1 DF, QD
     Route: 048
  8. CEROCRAL [Concomitant]
     Indication: CAROTID ARTERY STENOSIS
     Dosage: 2 DF, QD
     Route: 048
  9. OMEPRAL [Concomitant]
     Indication: PROPHYLAXIS
     Dosage: 1 DF, QD
     Route: 048
  10. LENDORMIN [Concomitant]
     Indication: INSOMNIA
     Dosage: 1 DF, QD
     Route: 048
  11. ZYLORIC [Concomitant]
     Indication: PROPHYLAXIS
     Dosage: 2 DF, QD
     Route: 048
     Dates: start: 20120418, end: 20120503

REACTIONS (2)
  - Sepsis [Recovered/Resolved]
  - Neutrophil count decreased [Recovered/Resolved]
